FAERS Safety Report 9525861 (Version 4)
Quarter: 2014Q2

REPORT INFORMATION
  Report Type: Report from Study
  Country: US (occurrence: US)
  Receive Date: 20130916
  Receipt Date: 20140401
  Transmission Date: 20141212
  Serious: Yes (Hospitalization, Other)
  Sender: FDA-Public Use
  Company Number: US-ALEXION-A201302211

PATIENT
  Age: 25 Year
  Sex: Female

DRUGS (13)
  1. ECULIZUMAB [Suspect]
     Indication: HAEMOLYTIC URAEMIC SYNDROME
     Dosage: 900 MG, QW
     Route: 042
     Dates: start: 20090827, end: 20090924
  2. ECULIZUMAB [Suspect]
     Dosage: 1200 MG, Q2W
     Route: 042
     Dates: start: 20091006
  3. TYLENOL [Concomitant]
  4. ALBUTEROL [Concomitant]
  5. NORVASC [Concomitant]
  6. CLONIDINE [Concomitant]
  7. LASIX [Concomitant]
  8. ROBITUSSIN [Concomitant]
  9. HYDRALAZINE HCL [Concomitant]
  10. NORCO [Concomitant]
  11. LEVOFLOXACIN [Concomitant]
  12. ATROVENT [Concomitant]
  13. METOPROLOL [Concomitant]

REACTIONS (1)
  - Abdominal pain [Recovered/Resolved]
